FAERS Safety Report 7910579-0 (Version None)
Quarter: 2011Q4

REPORT INFORMATION
  Report Type: 
  Country: None (occurrence: None)
  Receive Date: 20111111
  Receipt Date: 20111107
  Transmission Date: 20120403
  Serious: Yes (Life-Threatening, Hospitalization, Other)
  Sender: FDA-Public Use
  Company Number: PHEH2011US06783

PATIENT
  Sex: Female

DRUGS (6)
  1. FUROSEMIDE [Concomitant]
  2. OMEPRAZOLE [Concomitant]
  3. RECLAST [Suspect]
     Dosage: UNK
     Route: 042
  4. VITAMIN D [Concomitant]
  5. METHIMAZOLE [Concomitant]
  6. SERTRALINE HYDROCHLORIDE [Concomitant]

REACTIONS (12)
  - NEUTROPENIA [None]
  - MALAISE [None]
  - DECREASED APPETITE [None]
  - HYPOTENSION [None]
  - LEUKOPENIA [None]
  - PLATELET COUNT INCREASED [None]
  - ANAEMIA [None]
  - HAEMOGLOBIN DECREASED [None]
  - HAEMATOCRIT DECREASED [None]
  - PANCYTOPENIA [None]
  - HYPOKALAEMIA [None]
  - PYREXIA [None]
